FAERS Safety Report 7476351-3 (Version None)
Quarter: 2011Q2

REPORT INFORMATION
  Report Type: 
  Country: None (occurrence: None)
  Receive Date: 20110512
  Receipt Date: 20110503
  Transmission Date: 20111010
  Serious: Yes (Hospitalization)
  Sender: FDA-Public Use
  Company Number: A0889302A

PATIENT
  Age: 64 Year
  Sex: Male
  Weight: 85.9 kg

DRUGS (10)
  1. K-DUR [Concomitant]
  2. GLYBURIDE [Concomitant]
  3. ROSIGLITAZONE [Suspect]
     Indication: DIABETES MELLITUS
     Route: 048
     Dates: start: 20000101, end: 20100101
  4. LIPITOR [Concomitant]
  5. ASPIRIN [Concomitant]
  6. GLUCOVANCE [Concomitant]
  7. TOPROL-XL [Concomitant]
  8. LASIX [Concomitant]
  9. LISINOPRIL [Concomitant]
  10. ZESTRIL [Concomitant]

REACTIONS (3)
  - CARDIAC FAILURE CONGESTIVE [None]
  - VASCULAR GRAFT [None]
  - MYOCARDIAL INFARCTION [None]
